FAERS Safety Report 4407237-6 (Version None)
Quarter: 2004Q3

REPORT INFORMATION
  Report Type: 
  Country: None (occurrence: None)
  Receive Date: 20040721
  Receipt Date: 20040702
  Transmission Date: 20050211
  Serious: Yes (Disabling, Other)
  Sender: FDA-Public Use
  Company Number: USA040771721

PATIENT
  Age: 27 Year
  Sex: Male
  Weight: 123 kg

DRUGS (1)
  1. KEFZOL [Suspect]
     Dosage: 500 MG
     Dates: start: 20020901, end: 20020901

REACTIONS (7)
  - DERMATOMYOSITIS [None]
  - DIFFICULTY IN WALKING [None]
  - DYSSTASIA [None]
  - FALL [None]
  - IMPAIRED WORK ABILITY [None]
  - INJECTION SITE INDURATION [None]
  - WEIGHT DECREASED [None]
